FAERS Safety Report 9288100 (Version 1)
Quarter: 2013Q2

REPORT INFORMATION
  Report Type: Spontaneous
  Country: US (occurrence: None)
  Receive Date: 20130513
  Receipt Date: 20130513
  Transmission Date: 20140414
  Serious: Yes (Other)
  Sender: FDA-Public Use
  Company Number: None

PATIENT
  Age: 70 Year
  Sex: Female

DRUGS (4)
  1. PROLIA [Suspect]
     Indication: OSTEOPOROSIS
     Dates: start: 20130305, end: 20130305
  2. LISINOPRIL [Concomitant]
  3. RITUXAN [Concomitant]
  4. ZANTAC [Concomitant]

REACTIONS (2)
  - Scleroderma [None]
  - Condition aggravated [None]
